FAERS Safety Report 10027540 (Version 1)
Quarter: 2014Q1

REPORT INFORMATION
  Report Type: Spontaneous
  Country: GB (occurrence: None)
  Receive Date: 20140318
  Receipt Date: 20140318
  Transmission Date: 20141002
  Serious: Yes (Hospitalization)
  Sender: FDA-Public Use
  Company Number: AUR-APL-2014-02605

PATIENT
  Age: 58 Year
  Sex: Male

DRUGS (1)
  1. DONEPEZIL [Suspect]
     Indication: DEMENTIA
     Route: 048
     Dates: start: 201308, end: 201310

REACTIONS (1)
  - Grand mal convulsion [None]
